FAERS Safety Report 5166848-3 (Version None)
Quarter: 2006Q4

REPORT INFORMATION
  Report Type: 
  Country: None (occurrence: None)
  Receive Date: 20061129
  Receipt Date: 20060706
  Transmission Date: 20070319
  Serious: Yes (Hospitalization)
  Sender: FDA-Public Use
  Company Number: 2006144205

PATIENT
  Age: 15 Year
  Sex: Male

DRUGS (1)
  1. FELDENE [Suspect]
     Indication: MUSCULOSKELETAL PAIN
     Dosage: 60 MG (20 MG, 3 IN 1 D); ORAL
     Route: 048
     Dates: start: 20060401, end: 20060419

REACTIONS (3)
  - DISTRACTIBILITY [None]
  - HEADACHE [None]
  - VISUAL DISTURBANCE [None]
